FAERS Safety Report 8018639 (Version 6)
Quarter: 2013Q1

REPORT INFORMATION
  Report Type: Spontaneous
  Country: US (occurrence: None)
  Receive Date: 20110617
  Receipt Date: 20121204
  Transmission Date: 20140127
  Serious: Yes (Other)
  Sender: FDA-Public Use
  Company Number: ACO_21694_2011

PATIENT
  Age: 63 Year
  Sex: Female
  Weight: 82.1 kg

DRUGS (8)
  1. AMITRIPTYLINE HYDROCHLORIDE [Concomitant]
  2. XANAX [Concomitant]
  3. LISINOPRIL HCTZ (HYDROCHLOROTHIAZIDE, LISINOPRIL) [Concomitant]
  4. PROVIGIL [Concomitant]
  5. VITAMIN NOS (VITAMIN NOS) [Concomitant]
  6. AMPYRA [Suspect]
     Indication: GAIT DISTURBANCE
     Dosage: 10 MG, BID, ORAL
     Route: 048
     Dates: start: 20100730
  7. BACLOFEN [Concomitant]
  8. IBUPROFEN (IBUPROFEN) [Concomitant]

REACTIONS (16)
  - Bronchitis [None]
  - Multiple sclerosis relapse [None]
  - Cough [None]
  - Swelling [None]
  - Hypoaesthesia [None]
  - Feeling abnormal [None]
  - Gait disturbance [None]
  - Balance disorder [None]
  - Asthenia [None]
  - Inappropriate schedule of drug administration [None]
  - Pulmonary congestion [None]
  - Therapeutic response unexpected [None]
  - Oedema [None]
  - Constipation [None]
  - Respiratory tract congestion [None]
  - Abasia [None]
